FAERS Safety Report 6771196-1 (Version None)
Quarter: 2010Q2

REPORT INFORMATION
  Report Type: 
  Country: None (occurrence: None)
  Receive Date: 20100616
  Receipt Date: 20100602
  Transmission Date: 20101027
  Serious: Yes (Hospitalization, Other)
  Sender: FDA-Public Use
  Company Number: US-ASTRAZENECA-2007UW12598

PATIENT
  Age: 12243 Day
  Sex: Male
  Weight: 84.5 kg

DRUGS (11)
  1. SEROQUEL [Suspect]
     Indication: SLEEP DISORDER
     Route: 048
     Dates: start: 20010401, end: 20040401
  2. SEROQUEL [Suspect]
     Indication: ANGER
     Route: 048
     Dates: start: 20010401, end: 20040401
  3. SEROQUEL [Suspect]
     Route: 048
     Dates: start: 20030924
  4. SEROQUEL [Suspect]
     Route: 048
     Dates: start: 20030924
  5. LITHIUM [Concomitant]
     Dates: start: 20000801, end: 20051001
  6. LITHIUM [Concomitant]
     Dates: start: 20030924
  7. WELLBUTRIN [Concomitant]
     Dates: start: 20000801, end: 20051001
  8. WELLBUTRIN [Concomitant]
     Dates: start: 20030924
  9. ZOCOR [Concomitant]
     Route: 048
     Dates: start: 20060109
  10. GEMFIBROZIL [Concomitant]
     Route: 048
     Dates: start: 20060109
  11. COUMADIN [Concomitant]
     Dates: start: 20060109

REACTIONS (11)
  - BENIGN PANCREATIC NEOPLASM [None]
  - BLOOD CHOLESTEROL INCREASED [None]
  - GASTROINTESTINAL DISORDER [None]
  - GASTROOESOPHAGEAL REFLUX DISEASE [None]
  - HYPERHIDROSIS [None]
  - INFREQUENT BOWEL MOVEMENTS [None]
  - OLIGURIA [None]
  - PANCREATITIS ACUTE [None]
  - PANCREATITIS CHRONIC [None]
  - THROMBOSIS [None]
  - VOMITING [None]
